FAERS Safety Report 5128511-4 (Version None)
Quarter: 2006Q4

REPORT INFORMATION
  Report Type: 
  Country: None (occurrence: None)
  Receive Date: 20061011
  Receipt Date: 20060919
  Transmission Date: 20070319
  Serious: Yes (Other)
  Sender: FDA-Public Use
  Company Number: 2006-07-0705

PATIENT
  Age: 55 Year
  Sex: Male
  Weight: 60.782 kg

DRUGS (12)
  1. PEG-INTRON [Suspect]
     Indication: HEPATITIS C
     Dosage: SC
     Route: 058
     Dates: start: 20060519
  2. REBETOL [Suspect]
     Indication: HEPATITIS C
     Dosage: PO
     Route: 048
     Dates: start: 20060519
  3. AUGMENTIN [Suspect]
     Indication: COUGH
     Dates: start: 20060501, end: 20060501
  4. HYZAAR [Concomitant]
  5. LIBRIUM [Concomitant]
  6. LOPID [Concomitant]
  7. MOTRIN IB [Concomitant]
  8. METOPROLOL TARTRATE [Concomitant]
  9. NASONEX [Concomitant]
  10. ASPIRIN [Concomitant]
  11. ULTRAM [Concomitant]
  12. ZANTAC [Concomitant]

REACTIONS (15)
  - ABDOMINAL PAIN [None]
  - BALANCE DISORDER [None]
  - DEHYDRATION [None]
  - DIARRHOEA [None]
  - DIZZINESS POSTURAL [None]
  - FATIGUE [None]
  - HAEMOGLOBIN DECREASED [None]
  - HYPOAESTHESIA [None]
  - NASOPHARYNGITIS [None]
  - PALLOR [None]
  - PARAESTHESIA [None]
  - PLATELET COUNT DECREASED [None]
  - PULMONARY CONGESTION [None]
  - WEIGHT DECREASED [None]
  - WHITE BLOOD CELL COUNT DECREASED [None]
